FAERS Safety Report 6831238-1 (Version None)
Quarter: 2010Q3

REPORT INFORMATION
  Report Type: 
  Country: None (occurrence: None)
  Receive Date: 20100712
  Receipt Date: 20100705
  Transmission Date: 20110219
  Serious: Yes (Hospitalization)
  Sender: FDA-Public Use
  Company Number: DE-BRISTOL-MYERS SQUIBB COMPANY-15180300

PATIENT
  Age: 64 Year
  Sex: Male

DRUGS (1)
  1. IRBESARTAN [Suspect]
     Dosage: 1 DF = MAXIMUM AMOUNT OF THE TABLET 96.
     Route: 048

REACTIONS (3)
  - OVERDOSE [None]
  - SUICIDE ATTEMPT [None]
  - TACHYARRHYTHMIA [None]
